FAERS Safety Report 6439704-8 (Version None)
Quarter: 2009Q4

REPORT INFORMATION
  Report Type: 
  Country: None (occurrence: None)
  Receive Date: 20091113
  Receipt Date: 20091104
  Transmission Date: 20100525
  Serious: Yes (Other)
  Sender: FDA-Public Use
  Company Number: US-BAYER-200935246NA

PATIENT
  Age: 51 Year
  Sex: Female

DRUGS (5)
  1. ULTRAVIST 370 [Suspect]
     Indication: COMPUTERISED TOMOGRAM ABDOMEN
     Dosage: TOTAL DAILY DOSE: 100 ML  UNIT DOSE: 500 ML
     Route: 042
     Dates: start: 20090929, end: 20090929
  2. PROZAC [Concomitant]
  3. MEDROL [Concomitant]
     Dosage: 12 HRS AND 2 HRS PRIOR TO EXAM
  4. READI-CAT [Concomitant]
     Route: 048
     Dates: start: 20090928, end: 20090928
  5. READI-CAT [Concomitant]
     Route: 048
     Dates: start: 20090929, end: 20090929

REACTIONS (4)
  - DYSPHONIA [None]
  - PHARYNGEAL OEDEMA [None]
  - SNEEZING [None]
  - THROAT IRRITATION [None]
